FAERS Safety Report 19878720 (Version 1)
Quarter: 2021Q3

REPORT INFORMATION
  Report Type: Spontaneous
  Country: DE (occurrence: DE)
  Receive Date: 20210923
  Receipt Date: 20210923
  Transmission Date: 20211014
  Serious: Yes (Other)
  Sender: FDA-Public Use
  Company Number: DE-ETHYPHARM-2021001394

PATIENT
  Age: 1 Day
  Sex: Female
  Weight: 2.4 kg

DRUGS (4)
  1. BUPRENORPHINE. [Suspect]
     Active Substance: BUPRENORPHINE
     Dosage: 8 [MG/D ] 0 ? 40. GESTATIONAL WEEK
     Route: 064
     Dates: start: 20200111, end: 20201021
  2. ESCITALOPRAM [Suspect]
     Active Substance: ESCITALOPRAM OXALATE
     Dosage: 10 [MG/D ]
     Route: 064
     Dates: start: 20200111, end: 20201021
  3. METOPROLOLSUCCINAT [Suspect]
     Active Substance: METOPROLOL SUCCINATE
     Dosage: 95 [MG/D ]
     Route: 064
     Dates: start: 20200111, end: 20201021
  4. IBUPROFEN 400 [Concomitant]
     Active Substance: IBUPROFEN
     Dosage: 400 [MG/D (BEI BEDARF) ]
     Route: 064

REACTIONS (4)
  - Foetal exposure during pregnancy [Unknown]
  - Sepsis neonatal [Recovered/Resolved]
  - Drug withdrawal syndrome neonatal [Recovered/Resolved]
  - Small for dates baby [Unknown]

NARRATIVE: CASE EVENT DATE: 20201021
